FAERS Safety Report 7347308-8 (Version None)
Quarter: 2011Q1

REPORT INFORMATION
  Report Type: 
  Country: None (occurrence: None)
  Receive Date: 20110311
  Receipt Date: 20110307
  Transmission Date: 20110831
  Serious: Yes (Hospitalization)
  Sender: FDA-Public Use
  Company Number: FR-ROCHE-711624

PATIENT
  Sex: Male
  Weight: 55 kg

DRUGS (4)
  1. PEGINTERFERON ALFA-2A [Suspect]
     Dosage: LAST DOSE PRIOR TO SAE 25 MAY 2010.
     Route: 058
     Dates: start: 20100118
  2. RIBAVIRIN [Suspect]
     Route: 048
     Dates: start: 20100305, end: 20100412
  3. RIBAVIRIN [Suspect]
     Dosage: LAST DOSE PRIOR TO SAE ON 25 MAY 2010.
     Route: 048
     Dates: start: 20100118, end: 20100304
  4. RIBAVIRIN [Suspect]
     Route: 048
     Dates: start: 20100413, end: 20100525

REACTIONS (1)
  - CYANOSIS [None]
